FAERS Safety Report 20009578 (Version 2)
Quarter: 2021Q4

REPORT INFORMATION
  Report Type: Other
  Country: JP (occurrence: JP)
  Receive Date: 20211029
  Receipt Date: 20211228
  Transmission Date: 20220304
  Serious: Yes (Other)
  Sender: FDA-Public Use
  Company Number: JP-CHUGAI-2021022913

PATIENT
  Age: 51 Year
  Sex: Female
  Weight: 55 kg

DRUGS (2)
  1. ENTRECTINIB [Suspect]
     Active Substance: ENTRECTINIB
     Indication: Adrenocortical carcinoma
     Dosage: 600 MILLIGRAM, QD
     Route: 048
     Dates: start: 20210517, end: 20210825
  2. ENTRECTINIB [Suspect]
     Active Substance: ENTRECTINIB
     Dosage: 600 MILLIGRAM, QD
     Route: 048
     Dates: start: 20210907, end: 20210909

REACTIONS (8)
  - Blood lactate dehydrogenase increased [Recovered/Resolved]
  - Aspartate aminotransferase increased [Recovered/Resolved]
  - Blood alkaline phosphatase increased [Recovered/Resolved]
  - Electrocardiogram QT prolonged [Recovering/Resolving]
  - Cardiac failure [Recovered/Resolved]
  - Pyrexia [Recovered/Resolved]
  - Taste disorder [Recovered/Resolved]
  - Nausea [Recovered/Resolved]

NARRATIVE: CASE EVENT DATE: 20210520
